FAERS Safety Report 10265029 (Version 1)
Quarter: 2014Q2

REPORT INFORMATION
  Report Type: Spontaneous
  Country: US (occurrence: None)
  Receive Date: 20140625
  Receipt Date: 20140625
  Transmission Date: 20141212
  Serious: No
  Sender: FDA-Public Use
  Company Number: None

PATIENT
  Sex: Male

DRUGS (1)
  1. FORTEO PEN [Suspect]
     Indication: OSTEOPOROSIS
     Route: 058
     Dates: start: 20140217, end: 201406

REACTIONS (2)
  - Eye pain [None]
  - Head discomfort [None]
